FAERS Safety Report 5574792-2 (Version None)
Quarter: 2007Q4

REPORT INFORMATION
  Report Type: 
  Country: None (occurrence: None)
  Receive Date: 20071226
  Receipt Date: 20071226
  Transmission Date: 20080405
  Serious: Yes (Hospitalization)
  Sender: FDA-Public Use
  Company Number: None

PATIENT
  Sex: Female
  Weight: 44.5 kg

DRUGS (6)
  1. FLUOROURACIL [Suspect]
     Dosage: 12348 MG
     Dates: end: 20071204
  2. BEVACIZUMAB (RHUMAB VEGF) [Suspect]
     Dosage: 454 MG
     Dates: end: 20071120
  3. LEUCOVORIN CALCIUM [Suspect]
     Dosage: 1764 MG
     Dates: end: 20071204
  4. ELOXATIN [Suspect]
     Dates: end: 20070703
  5. ASPIRIN [Concomitant]
  6. CYMBALTA [Concomitant]

REACTIONS (12)
  - BODY TEMPERATURE DECREASED [None]
  - CHILLS [None]
  - GASTRITIS [None]
  - GASTRITIS EROSIVE [None]
  - GASTROINTESTINAL HAEMORRHAGE [None]
  - HELICOBACTER INFECTION [None]
  - HIATUS HERNIA [None]
  - PEPTIC ULCER [None]
  - PLATELET COUNT DECREASED [None]
  - PROTHROMBIN TIME SHORTENED [None]
  - PYREXIA [None]
  - RECTAL HAEMORRHAGE [None]
